FAERS Safety Report 9759901 (Version 2)
Quarter: 2014Q1

REPORT INFORMATION
  Report Type: Spontaneous
  Country: CL (occurrence: CL)
  Receive Date: 20131216
  Receipt Date: 20140123
  Transmission Date: 20141002
  Serious: Yes (Other)
  Sender: FDA-Public Use
  Company Number: CL-PFIZER INC-2013357215

PATIENT
  Age: 75 Year
  Sex: Male

DRUGS (7)
  1. LYRICA [Suspect]
     Indication: POLYNEUROPATHY
     Dosage: 150 MG, 2X/DAY
     Route: 048
     Dates: start: 2005
  2. OMEPRAZOLE [Concomitant]
  3. LORAZEPAM [Concomitant]
     Dosage: 1 DF, 1X/DAY
     Dates: start: 2009
  4. TRITTICO [Concomitant]
  5. ECOTRIN [Concomitant]
  6. METFORMIN [Concomitant]
     Dosage: UNK
     Dates: start: 2009
  7. NUTRITIONAL SUPPLEMENT [Concomitant]
     Dosage: UNK
     Dates: start: 2011

REACTIONS (4)
  - Macular degeneration [Not Recovered/Not Resolved]
  - Glucose tolerance impaired [Not Recovered/Not Resolved]
  - Inguinal hernia [Not Recovered/Not Resolved]
  - Hypoacusis [Not Recovered/Not Resolved]
